FAERS Safety Report 13387684 (Version 2)
Quarter: 2017Q2

REPORT INFORMATION
  Report Type: Spontaneous
  Country: DE (occurrence: DE)
  Receive Date: 20170330
  Receipt Date: 20170602
  Transmission Date: 20170830
  Serious: Yes (Death, Other)
  Sender: FDA-Public Use
  Company Number: DE-ROCHE-1912539

PATIENT

DRUGS (1)
  1. LUCENTIS [Suspect]
     Active Substance: RANIBIZUMAB
     Indication: RETINOPATHY OF PREMATURITY
     Dosage: 0.025 ML, TWICE IN JAN 2017
     Route: 031
     Dates: start: 201701, end: 201701

REACTIONS (5)
  - Inappropriate schedule of drug administration [Unknown]
  - Subdural hygroma [Fatal]
  - Product use in unapproved indication [Unknown]
  - Intracranial aneurysm [Fatal]
  - Seizure [Unknown]

NARRATIVE: CASE EVENT DATE: 20170301
